FAERS Safety Report 7356097-2 (Version None)
Quarter: 2011Q1

REPORT INFORMATION
  Report Type: 
  Country: None (occurrence: None)
  Receive Date: 20110316
  Receipt Date: 20101014
  Transmission Date: 20110831
  Serious: Yes (Hospitalization, Other)
  Sender: FDA-Public Use
  Company Number: US-BAYER-201022653NA

PATIENT
  Sex: Female
  Weight: 72.562 kg

DRUGS (5)
  1. PROMETHAZINE [Concomitant]
     Dosage: 25 MG, UNK
     Route: 048
  2. YASMIN [Suspect]
     Indication: CONTRACEPTION
     Dosage: UNK
     Route: 048
     Dates: start: 20020101
  3. CIPRO [Concomitant]
     Dosage: UNK
     Dates: start: 20050201
  4. YASMIN [Suspect]
     Dosage: UNK
     Route: 048
     Dates: start: 20031101, end: 20080601
  5. VANIQA [Concomitant]
     Dosage: UNK
     Dates: start: 20050201

REACTIONS (5)
  - MUCOSAL ULCERATION [None]
  - CHOLECYSTITIS CHRONIC [None]
  - CHOLELITHIASIS [None]
  - GALLBLADDER DISORDER [None]
  - CHOLECYSTITIS ACUTE [None]
